FAERS Safety Report 5809586-3 (Version None)
Quarter: 2008Q3

REPORT INFORMATION
  Report Type: 
  Country: None (occurrence: None)
  Receive Date: 20080708
  Receipt Date: 20070905
  Transmission Date: 20090109
  Serious: Yes (Hospitalization)
  Sender: FDA-Public Use
  Company Number: M-07-0755

PATIENT
  Sex: Male

DRUGS (4)
  1. PACERONE [Suspect]
     Indication: ATRIAL FIBRILLATION
     Dosage: PO
     Route: 048
     Dates: start: 20070801, end: 20070101
  2. LISINOPRIL [Concomitant]
  3. METOPROLOL TARTRATE [Concomitant]
  4. ZETIA [Concomitant]

REACTIONS (1)
  - RHABDOMYOLYSIS [None]
